FAERS Safety Report 20563041 (Version 6)
Quarter: 2022Q3

REPORT INFORMATION
  Report Type: Report from Study
  Country: BR (occurrence: BR)
  Receive Date: 20220307
  Receipt Date: 20220811
  Transmission Date: 20221026
  Serious: Yes (Hospitalization, Other)
  Sender: FDA-Public Use
  Company Number: BR-ABBVIE-22K-020-4301395-00

PATIENT
  Age: 52 Year
  Sex: Female
  Weight: 85 kg

DRUGS (3)
  1. RINVOQ [Suspect]
     Active Substance: UPADACITINIB
     Indication: Rheumatoid arthritis
     Route: 048
     Dates: start: 20210718, end: 20220107
  2. RINVOQ [Suspect]
     Active Substance: UPADACITINIB
     Route: 048
     Dates: start: 20220207, end: 2022
  3. PROPRANOLOL [Concomitant]
     Active Substance: PROPRANOLOL HYDROCHLORIDE
     Indication: Heart rate abnormal

REACTIONS (31)
  - Aneurysm [Recovering/Resolving]
  - Neurological procedural complication [Recovering/Resolving]
  - Incision site inflammation [Unknown]
  - Oedema [Unknown]
  - Seroma [Unknown]
  - Brain oedema [Unknown]
  - Eye swelling [Unknown]
  - Pain [Unknown]
  - Incision site discharge [Recovering/Resolving]
  - Pneumonia bacterial [Recovered/Resolved]
  - Intracranial infection [Not Recovered/Not Resolved]
  - Loss of consciousness [Unknown]
  - Pneumonia [Recovered/Resolved]
  - Dehiscence [Recovered/Resolved]
  - Blindness unilateral [Unknown]
  - Postoperative wound infection [Not Recovered/Not Resolved]
  - Craniotomy [Unknown]
  - Post procedural complication [Recovering/Resolving]
  - Pneumonia [Recovering/Resolving]
  - Phlebitis [Unknown]
  - Pneumonitis [Recovering/Resolving]
  - Rheumatoid factor increased [Unknown]
  - Mobility decreased [Unknown]
  - Balance disorder [Unknown]
  - Post procedural complication [Unknown]
  - Oxygen saturation decreased [Unknown]
  - Pulmonary function test decreased [Unknown]
  - Lung disorder [Unknown]
  - Wound dehiscence [Recovered/Resolved]
  - Arthralgia [Unknown]
  - Immunodeficiency [Unknown]

NARRATIVE: CASE EVENT DATE: 20220101
